FAERS Safety Report 17282170 (Version 2)
Quarter: 2020Q1

REPORT INFORMATION
  Report Type: Spontaneous
  Country: US (occurrence: US)
  Receive Date: 20200117
  Receipt Date: 20200220
  Transmission Date: 20200409
  Serious: No
  Sender: FDA-Public Use
  Company Number: US-BAYER-2020-005274

PATIENT
  Age: 50 Year
  Sex: Female
  Weight: 62.59 kg

DRUGS (1)
  1. GADAVIST [Suspect]
     Active Substance: GADOBUTROL
     Indication: SCAN BRAIN
     Dosage: 6 ML, ONCE
     Dates: start: 20200109, end: 20200109

REACTIONS (3)
  - Chest discomfort [Recovered/Resolved]
  - Rash [Not Recovered/Not Resolved]
  - Erythema [Recovered/Resolved]

NARRATIVE: CASE EVENT DATE: 20200109
